FAERS Safety Report 14489890 (Version 2)
Quarter: 2018Q1

REPORT INFORMATION
  Report Type: Report from Study
  Country: US (occurrence: US)
  Receive Date: 20180206
  Receipt Date: 20180320
  Transmission Date: 20180509
  Serious: Yes (Hospitalization)
  Sender: FDA-Public Use
  Company Number: US-ROCHE-2062757

PATIENT
  Age: 62 Year
  Sex: Male
  Weight: 106.4 kg

DRUGS (14)
  1. LEVOTHYROXINE SODIUM. [Concomitant]
     Active Substance: LEVOTHYROXINE SODIUM
     Route: 048
     Dates: start: 20170731
  2. ATEZOLIZUMAB. [Suspect]
     Active Substance: ATEZOLIZUMAB
     Indication: RENAL CELL CARCINOMA
     Dosage: DATE OF MOST RECENT DOSE 11/JAN/2018, TIME 10:02
     Route: 042
     Dates: start: 20171017
  3. CHLORTHALIDONE. [Concomitant]
     Active Substance: CHLORTHALIDONE
     Route: 048
     Dates: start: 20170713
  4. PITAVASTATIN. [Concomitant]
     Active Substance: PITAVASTATIN CALCIUM
     Route: 048
     Dates: start: 20170808
  5. AMLODIPINE [Concomitant]
     Active Substance: AMLODIPINE BESYLATE
     Route: 048
     Dates: start: 20170713
  6. CLONAZEPAM. [Concomitant]
     Active Substance: CLONAZEPAM
     Route: 048
     Dates: start: 20170713
  7. ALLOPURINOL. [Concomitant]
     Active Substance: ALLOPURINOL
     Route: 048
     Dates: start: 20170713
  8. CARVEDILOL. [Concomitant]
     Active Substance: CARVEDILOL
     Route: 048
     Dates: start: 20170713
  9. CLONIDINE. [Concomitant]
     Active Substance: CLONIDINE
     Route: 048
     Dates: start: 20170731
  10. MAGNESIUM OXIDE. [Concomitant]
     Active Substance: MAGNESIUM OXIDE
     Route: 048
     Dates: start: 20170713
  11. METFORMIN [Concomitant]
     Active Substance: METFORMIN HYDROCHLORIDE
     Route: 048
     Dates: start: 20170713
  12. COLCHICINE. [Concomitant]
     Active Substance: COLCHICINE
     Route: 048
     Dates: start: 20170713
  13. CHOLECALCIFEROL [Concomitant]
     Active Substance: CHOLECALCIFEROL
     Dosage: DOSE: 1000 UNIT
     Route: 048
     Dates: start: 20170713
  14. IRBESARTAN. [Concomitant]
     Active Substance: IRBESARTAN
     Route: 048
     Dates: start: 20170713

REACTIONS (1)
  - Acute pulmonary oedema [Not Recovered/Not Resolved]

NARRATIVE: CASE EVENT DATE: 20180122
